FAERS Safety Report 8584117-6 (Version None)
Quarter: 2012Q3

REPORT INFORMATION
  Report Type: 
  Country: None (occurrence: None)
  Receive Date: 20120810
  Receipt Date: 20120802
  Transmission Date: 20120928
  Serious: No
  Sender: FDA-Public Use
  Company Number: US-009507513-1208USA001711

PATIENT

DRUGS (2)
  1. SINGULAIR [Suspect]
     Indication: HYPERSENSITIVITY
     Dosage: UNK
     Route: 048
  2. ISENTRESS [Suspect]
     Indication: HIV INFECTION
     Dosage: UNK
     Route: 048

REACTIONS (1)
  - HYPOKALAEMIA [None]
